FAERS Safety Report 15877760 (Version 2)
Quarter: 2019Q1

REPORT INFORMATION
  Report Type: Spontaneous
  Country: JP (occurrence: JP)
  Receive Date: 20190128
  Receipt Date: 20190328
  Transmission Date: 20190417
  Serious: Yes (Hospitalization)
  Sender: FDA-Public Use
  Company Number: JP-ROCHE-2253839

PATIENT
  Age: 75 Year
  Sex: Female

DRUGS (2)
  1. BENDAMUSTINE HYDROCHLORIDE. [Concomitant]
     Active Substance: BENDAMUSTINE HYDROCHLORIDE
     Dosage: DOSAGE IS UNCERTAIN.
     Route: 065
     Dates: start: 20181219
  2. GAZYVA [Suspect]
     Active Substance: OBINUTUZUMAB
     Indication: PRODUCT USED FOR UNKNOWN INDICATION
     Route: 041
     Dates: start: 20181219

REACTIONS (2)
  - Pyrexia [Not Recovered/Not Resolved]
  - Lymphocyte count decreased [Not Recovered/Not Resolved]

NARRATIVE: CASE EVENT DATE: 20181220
